FAERS Safety Report 24292641 (Version 1)
Quarter: 2024Q3

REPORT INFORMATION
  Report Type: Spontaneous
  Country: CA (occurrence: CA)
  Receive Date: 20240906
  Receipt Date: 20240906
  Transmission Date: 20241016
  Serious: Yes (Other)
  Sender: B BRAUN
  Company Number: CA-B.Braun Medical Inc.-2161327

PATIENT
  Age: 65 Year
  Sex: Female
  Weight: 34 kg

DRUGS (22)
  1. CALCIUM GLUCONATE [Suspect]
     Active Substance: CALCIUM GLUCONATE
  2. THEOPHYLLINE [Suspect]
     Active Substance: THEOPHYLLINE
  3. POLYMYXIN B SULFATE [Concomitant]
     Active Substance: POLYMYXIN B SULFATE
  4. NEOMYCIN SULFATE [Concomitant]
     Active Substance: NEOMYCIN SULFATE
  5. CEFADROXIL [Concomitant]
     Active Substance: CEFADROXIL
  6. XOLAIR [Suspect]
     Active Substance: OMALIZUMAB
  7. VITAMIN D [Suspect]
     Active Substance: VITAMIN D NOS
  8. TRAMADOL HYDROCHLORIDE [Suspect]
     Active Substance: TRAMADOL HYDROCHLORIDE
  9. SINGULAIR [Suspect]
     Active Substance: MONTELUKAST SODIUM
  10. ROSUVASTATIN [Suspect]
     Active Substance: ROSUVASTATIN\ROSUVASTATIN CALCIUM
  11. RITUXIMAB [Suspect]
     Active Substance: RITUXIMAB
  12. RISEDRONATE SODIUM [Suspect]
     Active Substance: RISEDRONATE SODIUM
  13. PREDNISONE [Suspect]
     Active Substance: PREDNISONE
  14. MOXIFLOXACIN [Suspect]
     Active Substance: MOXIFLOXACIN
  15. HYDROMORPHONE HYDROCHLORIDE [Suspect]
     Active Substance: HYDROMORPHONE HYDROCHLORIDE
  16. FOLATE SODIUM [Suspect]
     Active Substance: FOLATE SODIUM
  17. CLONAZEPAM [Suspect]
     Active Substance: CLONAZEPAM
  18. CIPROFLOXACIN [Suspect]
     Active Substance: CIPROFLOXACIN
  19. BECLOMETHASONE [Suspect]
     Active Substance: BECLOMETHASONE
  20. AMLODIPINE [Suspect]
     Active Substance: AMLODIPINE BESYLATE
  21. ADVAIR HFA [Suspect]
     Active Substance: FLUTICASONE PROPIONATE\SALMETEROL XINAFOATE
  22. ASPIRIN [Suspect]
     Active Substance: ASPIRIN

REACTIONS (9)
  - Asthma [Not Recovered/Not Resolved]
  - Vomiting [Not Recovered/Not Resolved]
  - Pneumonia [Not Recovered/Not Resolved]
  - Pain [Not Recovered/Not Resolved]
  - Oedema [Not Recovered/Not Resolved]
  - Nasal oedema [Not Recovered/Not Resolved]
  - Malaise [Not Recovered/Not Resolved]
  - Drug hypersensitivity [Not Recovered/Not Resolved]
  - Chest pain [Not Recovered/Not Resolved]
